FAERS Safety Report 4276414-X (Version None)
Quarter: 2004Q1

REPORT INFORMATION
  Report Type: 
  Country: None (occurrence: None)
  Receive Date: 20040116
  Receipt Date: 20040109
  Transmission Date: 20041129
  Serious: Yes (Hospitalization)
  Sender: FDA-Public Use
  Company Number: DK-JNJFOC-20031201656

PATIENT
  Age: 11 Year
  Sex: Male

DRUGS (2)
  1. CONCERTA [Suspect]
     Indication: DISTURBANCE IN ATTENTION
     Dosage: 18 MG, 1 IN 1 DAY; SEE IMAGE
     Dates: end: 20030724
  2. CONCERTA [Suspect]
     Indication: DISTURBANCE IN ATTENTION
     Dosage: 18 MG, 1 IN 1 DAY; SEE IMAGE
     Dates: start: 20030515

REACTIONS (2)
  - CHEST PAIN [None]
  - DYSLEXIA [None]
